FAERS Safety Report 12037516 (Version 14)
Quarter: 2018Q2

REPORT INFORMATION
  Report Type: Report from Study
  Country: CA (occurrence: CA)
  Receive Date: 20160208
  Receipt Date: 20180628
  Transmission Date: 20180711
  Serious: Yes (Hospitalization, Other)
  Sender: FDA-Public Use
  Company Number: PHHY2015CA076388

PATIENT
  Age: 65 Year
  Sex: Female

DRUGS (5)
  1. SANDOSTATIN LAR DEPOT [Suspect]
     Active Substance: OCTREOTIDE ACETATE
     Dosage: UNK
     Route: 030
     Dates: start: 20161202
  2. URSODIOL. [Concomitant]
     Active Substance: URSODIOL
     Indication: PRODUCT USED FOR UNKNOWN INDICATION
     Dosage: 1 DF, QD (FOR 7 DAYS)
     Route: 065
  3. SANDOSTATIN LAR DEPOT [Suspect]
     Active Substance: OCTREOTIDE ACETATE
     Indication: NEUROENDOCRINE TUMOUR
     Dosage: 20 MG, QMO (EVERY 4 WEEKS)
     Route: 030
     Dates: start: 20150622
  4. SANDOSTATIN [Suspect]
     Active Substance: OCTREOTIDE ACETATE
     Indication: NEUROENDOCRINE TUMOUR
     Dosage: 150 UG, TID FOR 10 DAYS
     Route: 058
     Dates: start: 20150617, end: 2015
  5. URSODIOL. [Concomitant]
     Active Substance: URSODIOL
     Dosage: 3 UNK, UNK
     Route: 065

REACTIONS (30)
  - Blood pressure increased [Unknown]
  - Confusional state [Recovering/Resolving]
  - Cold sweat [Recovering/Resolving]
  - Diarrhoea [Unknown]
  - Cholelithiasis [Unknown]
  - Neuralgia [Unknown]
  - Dyspnoea [Recovering/Resolving]
  - Musculoskeletal chest pain [Unknown]
  - Dizziness [Recovered/Resolved]
  - Diabetic coma [Unknown]
  - Neoplasm progression [Unknown]
  - Back pain [Unknown]
  - Anxiety [Unknown]
  - Ill-defined disorder [Not Recovered/Not Resolved]
  - Hypoglycaemia [Unknown]
  - Decreased appetite [Not Recovered/Not Resolved]
  - Hot flush [Recovered/Resolved]
  - Blood pressure systolic increased [Unknown]
  - Hyperhidrosis [Recovered/Resolved]
  - Nausea [Not Recovered/Not Resolved]
  - Asthenia [Not Recovered/Not Resolved]
  - Pain [Not Recovered/Not Resolved]
  - Hepatic pain [Not Recovered/Not Resolved]
  - Malignant neoplasm progression [Unknown]
  - Lethargy [Recovering/Resolving]
  - Hyperinsulinaemia [Unknown]
  - Fatigue [Unknown]
  - Sleep disorder [Recovering/Resolving]
  - Malaise [Not Recovered/Not Resolved]
  - Oedema peripheral [Unknown]

NARRATIVE: CASE EVENT DATE: 201506
